FAERS Safety Report 6147365-0 (Version None)
Quarter: 2009Q2

REPORT INFORMATION
  Report Type: 
  Country: None (occurrence: None)
  Receive Date: 20090408
  Receipt Date: 20090401
  Transmission Date: 20091009
  Serious: Yes (Hospitalization)
  Sender: FDA-Public Use
  Company Number: AT-WYE-G03444009

PATIENT
  Sex: Female
  Weight: 98 kg

DRUGS (10)
  1. VENLAFAXINE HCL [Suspect]
     Indication: SCHIZOAFFECTIVE DISORDER
     Dosage: 225 MG PER DAY
     Route: 048
     Dates: end: 20090123
  2. VENLAFAXINE HCL [Suspect]
     Dosage: 150 MG PER DAY
     Route: 048
     Dates: start: 20090124, end: 20090303
  3. VENLAFAXINE HCL [Suspect]
     Dosage: 75 MG PER DAY
     Route: 048
     Dates: start: 20090304, end: 20090328
  4. LITHIUM CARBONATE [Concomitant]
     Indication: SCHIZOAFFECTIVE DISORDER
     Dosage: 625 MG PER DAY
  5. DYNEXAN [Concomitant]
     Dosage: 1 TABLET PER DAY
  6. LEVOTHYROXINE SODIUM [Concomitant]
     Indication: HYPOTHYROIDISM
     Dosage: 125 ?G PER DAY
  7. FLUNITRAZEPAM [Concomitant]
     Dosage: 1 MG PER DAY
  8. SIMVASTATIN [Concomitant]
     Dosage: 20 MG PER DAY
  9. VALPROIC ACID [Concomitant]
     Indication: SCHIZOAFFECTIVE DISORDER
     Dosage: 1300 MG PER DAY
  10. QUETIAPINE [Concomitant]
     Indication: SCHIZOAFFECTIVE DISORDER
     Dosage: 1500 MG PER DAY

REACTIONS (5)
  - ANTIDEPRESSANT DRUG LEVEL INCREASED [None]
  - PERSECUTORY DELUSION [None]
  - RESTLESSNESS [None]
  - SLEEP DISORDER [None]
  - SUICIDAL IDEATION [None]
